FAERS Safety Report 13827026 (Version 1)
Quarter: 2017Q3

REPORT INFORMATION
  Report Type: Spontaneous
  Country: US (occurrence: US)
  Receive Date: 20170802
  Receipt Date: 20170802
  Transmission Date: 20171127
  Serious: No
  Sender: FDA-Public Use
  Company Number: US-ROCHE-667560

PATIENT
  Age: 54 Year
  Sex: Female

DRUGS (5)
  1. CALCIUM [Concomitant]
     Active Substance: CALCIUM
     Route: 065
  2. BONIVA [Suspect]
     Active Substance: IBANDRONATE SODIUM
     Indication: OSTEOPENIA
     Dosage: DOSE REPORTED AS: 150. DURATION; ONE DOSE.
     Route: 048
  3. MULTIVITAMIN [Concomitant]
     Active Substance: VITAMINS
     Route: 065
  4. BABY ASA [Concomitant]
     Active Substance: ASPIRIN
     Dosage: DRUG: BABY ASPIRIN.
     Route: 065
  5. ESTRING [Concomitant]
     Active Substance: ESTRADIOL
     Dosage: DRUG: ESTRING VAGINAL.
     Route: 065

REACTIONS (2)
  - Muscle spasms [Recovered/Resolved]
  - Gastrooesophageal reflux disease [Recovered/Resolved]

NARRATIVE: CASE EVENT DATE: 20091015
